FAERS Safety Report 12009801 (Version 2)
Quarter: 2016Q1

REPORT INFORMATION
  Report Type: Spontaneous
  Country: BR (occurrence: BR)
  Receive Date: 20160205
  Receipt Date: 20160206
  Transmission Date: 20160526
  Serious: Yes (Other)
  Sender: FDA-Public Use
  Company Number: BR-AMGEN-BRASP2015140956

PATIENT
  Age: 55 Year
  Sex: Female
  Weight: 87 kg

DRUGS (5)
  1. FOLIC ACID. [Concomitant]
     Active Substance: FOLIC ACID
     Dosage: 1 TALET OF 5 MG PER WEEK
  2. METHOTREXATE [Concomitant]
     Active Substance: METHOTREXATE
     Dosage: 6 TABLETS OF 2.5 MG 1X/WEEK
  3. ENBREL [Suspect]
     Active Substance: ETANERCEPT
     Indication: RHEUMATOID ARTHRITIS
     Dosage: 50 MG, ONCE WEEKLY
     Route: 058
     Dates: start: 20151212
  4. CALCIUM [Concomitant]
     Active Substance: CALCIUM
     Dosage: 1200 MG, 1X/DAY
  5. ENBREL [Suspect]
     Active Substance: ETANERCEPT
     Dosage: UNK
     Route: 065

REACTIONS (4)
  - Visual impairment [Unknown]
  - Viral infection [Unknown]
  - Pharyngeal inflammation [Unknown]
  - Dengue fever [Unknown]

NARRATIVE: CASE EVENT DATE: 20151225
